FAERS Safety Report 25408838 (Version 1)
Quarter: 2025Q2

REPORT INFORMATION
  Report Type: Spontaneous
  Country: US (occurrence: US)
  Receive Date: 20250607
  Receipt Date: 20250607
  Transmission Date: 20250716
  Serious: No
  Sender: ELI LILLY AND COMPANY
  Company Number: US-ELI_LILLY_AND_COMPANY-US202506005173

PATIENT
  Age: 54 Year
  Sex: Female

DRUGS (1)
  1. VERZENIO [Suspect]
     Active Substance: ABEMACICLIB
     Indication: Breast cancer female
     Dosage: 50 MG, BID
     Route: 048

REACTIONS (8)
  - Gastrooesophageal reflux disease [Unknown]
  - Abdominal discomfort [Unknown]
  - Weight decreased [Unknown]
  - Red blood cell count decreased [Unknown]
  - Nausea [Unknown]
  - Decreased appetite [Unknown]
  - White blood cell count decreased [Unknown]
  - Fatigue [Unknown]
